FAERS Safety Report 13152230 (Version 1)
Quarter: 2017Q1

REPORT INFORMATION
  Report Type: Spontaneous
  Country: US (occurrence: US)
  Receive Date: 20170125
  Receipt Date: 20170125
  Transmission Date: 20170428
  Serious: Yes (Hospitalization, Other)
  Sender: FDA-Public Use
  Company Number: US-TEVA-732410USA

PATIENT
  Sex: Female

DRUGS (1)
  1. CARBIDOPA AND LEVODOPA [Suspect]
     Active Substance: CARBIDOPA\LEVODOPA
     Dosage: 2 - 250MG DOSES
     Route: 065

REACTIONS (7)
  - Hallucination [Unknown]
  - Screaming [Unknown]
  - Shock [Unknown]
  - Tremor [Unknown]
  - Muscle rigidity [Unknown]
  - Pain [Unknown]
  - Seizure [Unknown]

NARRATIVE: CASE EVENT DATE: 20161219
